FAERS Safety Report 6892969-0 (Version None)
Quarter: 2010Q3

REPORT INFORMATION
  Report Type: 
  Country: None (occurrence: None)
  Receive Date: 20100731
  Receipt Date: 20081217
  Transmission Date: 20110219
  Serious: Yes (Other)
  Sender: FDA-Public Use
  Company Number: US-PFIZER INC-2008085737

PATIENT
  Sex: Male
  Weight: 117.9 kg

DRUGS (13)
  1. AMLODIPINE BESYLATE [Suspect]
     Indication: HYPERTENSION
  2. FISH OIL [Concomitant]
  3. CALCIUM WITH VITAMIN D [Concomitant]
     Dosage: 100MG/400MG
  4. ACETYLSALICYLIC ACID SRT [Concomitant]
  5. CHONDROITIN SULFATE [Concomitant]
  6. HYDROCHLOROTHIAZIDE [Concomitant]
  7. CRESTOR [Concomitant]
  8. VALSARTAN [Concomitant]
  9. LASIX [Concomitant]
  10. POTASSIUM [Concomitant]
  11. LISINOPRIL [Concomitant]
  12. SPIRONOLACTONE [Concomitant]
  13. TRICOR [Concomitant]

REACTIONS (1)
  - BLOOD PRESSURE INCREASED [None]
